FAERS Safety Report 9728181 (Version 2)
Quarter: 2014Q1

REPORT INFORMATION
  Report Type: Spontaneous
  Country: BR (occurrence: BR)
  Receive Date: 20131204
  Receipt Date: 20140111
  Transmission Date: 20141002
  Serious: Yes (Hospitalization, Disabling)
  Sender: FDA-Public Use
  Company Number: BR-ASTRAZENECA-2013SE87607

PATIENT
  Age: 1002 Month
  Sex: Male

DRUGS (1)
  1. BRILINTA [Suspect]
     Route: 048
     Dates: start: 20130926

REACTIONS (3)
  - Cardiomegaly [Recovering/Resolving]
  - Gastric ulcer [Recovered/Resolved]
  - Weight decreased [Not Recovered/Not Resolved]
